FAERS Safety Report 4757679-4 (Version None)
Quarter: 2005Q3

REPORT INFORMATION
  Report Type: 
  Country: None (occurrence: None)
  Receive Date: 20050831
  Receipt Date: 20050823
  Transmission Date: 20060218
  Serious: Yes (Other)
  Sender: FDA-Public Use
  Company Number: GB-GLAXOSMITHKLINE-B0391553A

PATIENT
  Age: 46 Year
  Sex: Female
  Weight: 62.3 kg

DRUGS (1)
  1. MALARONE [Suspect]
     Indication: MALARIA PROPHYLAXIS
     Route: 048
     Dates: start: 20050505, end: 20050510

REACTIONS (2)
  - CLUBBING [None]
  - VASCULITIC RASH [None]
